FAERS Safety Report 8238296-0 (Version None)
Quarter: 2012Q1

REPORT INFORMATION
  Report Type: 
  Country: None (occurrence: None)
  Receive Date: 20120309
  Receipt Date: 20110118
  Transmission Date: 20120608
  Serious: Yes (Hospitalization)
  Sender: FDA-Public Use
  Company Number: PHHY2010US83367

PATIENT
  Age: 64 Year
  Sex: Female

DRUGS (6)
  1. EXTAVIA [Suspect]
     Indication: MULTIPLE SCLEROSIS
     Dosage: 0.125 MG, QOD, SUBCUTANEOUS; 0.187 MG; 0.25 MG, QD, SUBCUTANEOUS
     Route: 058
     Dates: start: 20101118
  2. WELLBUTRIN [Concomitant]
  3. METFORMIN HCL [Concomitant]
  4. ANTITHYROID PREPARATIONS (NO INGREDIENTS/SUBSTANCES) [Concomitant]
  5. CHOLESTEROL-AND TRIGLYCERIDE REDUCERS (NO INGREDIENTS/SUBSTANCES) [Concomitant]
  6. ANTIHYPERTENSIVE DRUGS (NO INGREDIENTS/SUBSTANCES) [Concomitant]

REACTIONS (5)
  - DECREASED ACTIVITY [None]
  - URINARY TRACT INFECTION [None]
  - FATIGUE [None]
  - INJECTION SITE ERYTHEMA [None]
  - LISTLESS [None]
